FAERS Safety Report 4896951-4 (Version None)
Quarter: 2006Q1

REPORT INFORMATION
  Report Type: 
  Country: None (occurrence: None)
  Receive Date: 20060127
  Receipt Date: 20060118
  Transmission Date: 20060701
  Serious: Yes (Hospitalization)
  Sender: FDA-Public Use
  Company Number: BR-2006-001053

PATIENT
  Age: 60 Year
  Sex: Male

DRUGS (3)
  1. SOTALOL HCL [Suspect]
     Indication: HYPERTENSION
     Dosage: 120 MG/D, ORAL
     Route: 048
     Dates: start: 19980101
  2. MARKEVAN ^BRITISH DRUG HOUSES^ (WARFARIN SODIUM) [Concomitant]
  3. SOMALGIN (MAGNESIUM CARBONATE, ALUMINIUM GLYCINATE, ACETYLSALICYLIC AC [Concomitant]

REACTIONS (4)
  - HYPOTENSION [None]
  - ISCHAEMIC STROKE [None]
  - PNEUMONIA [None]
  - THROMBOPHLEBITIS [None]
